FAERS Safety Report 4885015-1 (Version None)
Quarter: 2006Q1

REPORT INFORMATION
  Report Type: 
  Country: None (occurrence: None)
  Receive Date: 20060119
  Receipt Date: 20060113
  Transmission Date: 20060701
  Serious: Yes (Other)
  Sender: FDA-Public Use
  Company Number: 200610085EU

PATIENT
  Age: 19 Year
  Sex: Female

DRUGS (4)
  1. NICODERM [Suspect]
     Indication: SMOKING CESSATION THERAPY
     Dosage: 14MG PER DAY
     Route: 062
     Dates: start: 20051223
  2. ETHANOL [Suspect]
     Indication: DRUG USE FOR UNKNOWN INDICATION
     Route: 048
     Dates: start: 20051226, end: 20051226
  3. EUGYNON [Concomitant]
     Indication: CONTRACEPTION
     Dates: start: 20010101
  4. BISMUTH SUBSALICYLATE [Concomitant]
     Dates: start: 20051226

REACTIONS (6)
  - ALCOHOL POISONING [None]
  - APPLICATION SITE PRURITUS [None]
  - DIZZINESS [None]
  - HAEMATEMESIS [None]
  - MELAENA [None]
  - TREATMENT NONCOMPLIANCE [None]
